FAERS Safety Report 18267549 (Version 1)
Quarter: 2020Q3

REPORT INFORMATION
  Report Type: Spontaneous
  Country: US (occurrence: US)
  Receive Date: 20200915
  Receipt Date: 20200915
  Transmission Date: 20201103
  Serious: No
  Sender: FDA-Public Use
  Company Number: None

PATIENT
  Sex: Female

DRUGS (2)
  1. AMBRISENTAN [Suspect]
     Active Substance: AMBRISENTAN
     Route: 048
  2. SILDENAFIL TAB 20 MG ORAL [Concomitant]

REACTIONS (5)
  - Dry mouth [None]
  - Taste disorder [None]
  - Constipation [None]
  - Product substitution issue [None]
  - Blood test abnormal [None]
